FAERS Safety Report 21050198 (Version 1)
Quarter: 2022Q3

REPORT INFORMATION
  Report Type: Spontaneous
  Country: US (occurrence: US)
  Receive Date: 20220706
  Receipt Date: 20220706
  Transmission Date: 20221026
  Serious: Yes (Other)
  Sender: FDA-Public Use
  Company Number: US-drreddys-LIT/USA/22/0151779

PATIENT
  Age: 30 Year
  Sex: Female

DRUGS (6)
  1. LEVETIRACETAM [Suspect]
     Active Substance: LEVETIRACETAM
     Indication: MELAS syndrome
  2. LAMOTRIGINE [Suspect]
     Active Substance: LAMOTRIGINE
     Indication: MELAS syndrome
  3. VALPROIC ACID [Suspect]
     Active Substance: VALPROIC ACID
     Indication: MELAS syndrome
  4. PHENOBARBITAL [Suspect]
     Active Substance: PHENOBARBITAL
     Indication: MELAS syndrome
  5. LACOSAMIDE [Suspect]
     Active Substance: LACOSAMIDE
     Indication: MELAS syndrome
  6. GABAPENTIN [Suspect]
     Active Substance: GABAPENTIN
     Indication: MELAS syndrome

REACTIONS (2)
  - Rash [Unknown]
  - Depression [Unknown]
